FAERS Safety Report 8304795-6 (Version None)
Quarter: 2012Q2

REPORT INFORMATION
  Report Type: 
  Country: None (occurrence: None)
  Receive Date: 20120423
  Receipt Date: 20120412
  Transmission Date: 20120825
  Serious: Yes (Disabling, Other)
  Sender: FDA-Public Use
  Company Number: US-ASTRAZENECA-2012SE24171

PATIENT
  Age: 81 Year
  Sex: Male

DRUGS (2)
  1. ENTOCORT EC [Suspect]
     Indication: COELIAC DISEASE
     Route: 048
  2. ENTOCORT EC [Suspect]
     Indication: GASTRIC DISORDER
     Route: 048

REACTIONS (4)
  - BLADDER CANCER [None]
  - ROAD TRAFFIC ACCIDENT [None]
  - OFF LABEL USE [None]
  - COLITIS MICROSCOPIC [None]
